FAERS Safety Report 9859397 (Version 3)
Quarter: 2014Q1

REPORT INFORMATION
  Report Type: Spontaneous
  Country: IT (occurrence: IT)
  Receive Date: 20140131
  Receipt Date: 20140217
  Transmission Date: 20141002
  Serious: Yes (Hospitalization)
  Sender: FDA-Public Use
  Company Number: PHHY2014IT009186

PATIENT
  Sex: Male

DRUGS (3)
  1. TEGRETOL [Suspect]
     Dosage: 400 MG, UNK
     Dates: start: 20131109, end: 20131109
  2. DEPAKIN [Suspect]
     Dosage: 5000 MG, TOTAL
     Route: 048
     Dates: start: 20131109, end: 20131109
  3. HALDOL [Suspect]
     Dosage: 15 ML, TOTAL
     Route: 048
     Dates: start: 20131108, end: 20131108

REACTIONS (2)
  - Coma [Not Recovered/Not Resolved]
  - Drug abuse [Not Recovered/Not Resolved]
